FAERS Safety Report 8821878 (Version 1)
Quarter: 2012Q4

REPORT INFORMATION
  Report Type: 
  Country: US (occurrence: US)
  Receive Date: 20121002
  Receipt Date: 20121002
  Transmission Date: 20130627
  Serious: Yes (Hospitalization)
  Sender: FDA-Public Use
  Company Number: US-MERCK-1210USA000656

PATIENT
  Sex: Female

DRUGS (1)
  1. JANUVIA [Suspect]
     Dosage: 100 mg, qd

REACTIONS (4)
  - Ketosis [Unknown]
  - Asthenia [Unknown]
  - Dehydration [Unknown]
  - Vomiting [Unknown]
